FAERS Safety Report 8530157-2 (Version None)
Quarter: 2012Q3

REPORT INFORMATION
  Report Type: 
  Country: None (occurrence: None)
  Receive Date: 20120710
  Receipt Date: 20120627
  Transmission Date: 20120928
  Serious: No
  Sender: FDA-Public Use
  Company Number: 2006JP000948

PATIENT
  Age: 9 Year
  Sex: Female

DRUGS (7)
  1. PROPETO (WHITE SOFT PARAFFIN) [Concomitant]
  2. HIRUDOID (MUCOPOLYSACCHARIDE POLYSULFURIC ACID ESTER) [Concomitant]
  3. NERISONE [Concomitant]
  4. LOCOID [Concomitant]
  5. PROTOPIC [Suspect]
     Indication: DERMATITIS ATOPIC
     Dosage: 0.03 % , TOPICAL
     Route: 061
  6. CLINDAMYCIN PHOSPHATE [Concomitant]
  7. ALLEGRA [Concomitant]

REACTIONS (3)
  - ACNE [None]
  - SKIN PAPILLOMA [None]
  - HERPES SIMPLEX [None]
